FAERS Safety Report 6089244-3 (Version None)
Quarter: 2009Q1

REPORT INFORMATION
  Report Type: 
  Country: None (occurrence: None)
  Receive Date: 20090219
  Receipt Date: 20090129
  Transmission Date: 20090719
  Serious: No
  Sender: FDA-Public Use
  Company Number: JP-GUERBET-20090002

PATIENT
  Age: 29 Year
  Sex: Male

DRUGS (3)
  1. HEXABRIX [Suspect]
     Indication: ANGIOGRAM
     Dosage: 5, ML MILLILITRE(S), 1, 1, TOTAL; INTRA-ARTERIAL
     Route: 013
     Dates: start: 20090129, end: 20090129
  2. XYLOCAINE [Concomitant]
  3. SOSEGON / NALOXONE HYDROCHLORIDE [Concomitant]

REACTIONS (3)
  - ANAPHYLACTIC SHOCK [None]
  - COLD SWEAT [None]
  - COUGH [None]
